FAERS Safety Report 19799210 (Version 2)
Quarter: 2022Q2

REPORT INFORMATION
  Report Type: Spontaneous
  Country: US (occurrence: US)
  Receive Date: 20210907
  Receipt Date: 20220505
  Transmission Date: 20220721
  Serious: No
  Sender: FDA-Public Use
  Company Number: US-PFIZER INC-202101082683

PATIENT
  Age: 74 Year
  Sex: Female

DRUGS (1)
  1. XELJANZ [Suspect]
     Active Substance: TOFACITINIB CITRATE
     Indication: Cystitis
     Dosage: 5 MG

REACTIONS (4)
  - Drug ineffective [Unknown]
  - Cystitis [Unknown]
  - Disease recurrence [Unknown]
  - Pain [Unknown]
